FAERS Safety Report 24171412 (Version 1)
Quarter: 2024Q3

REPORT INFORMATION
  Report Type: Spontaneous
  Country: HU (occurrence: HU)
  Receive Date: 20240805
  Receipt Date: 20240805
  Transmission Date: 20241017
  Serious: Yes (Other)
  Sender: OXFORD PHARMACEUTICALS
  Company Number: HU-Oxford Pharmaceuticals, LLC-2159979

PATIENT
  Age: 11 Year
  Sex: Female

DRUGS (7)
  1. LEVETIRACETAM [Suspect]
     Active Substance: LEVETIRACETAM
     Indication: Epilepsy
  2. LAMOTRIGINE [Suspect]
     Active Substance: LAMOTRIGINE
  3. ZONISAMIDE [Suspect]
     Active Substance: ZONISAMIDE
  4. TOPIRAMATE [Suspect]
     Active Substance: TOPIRAMATE
  5. CARBAMAZEPINE [Suspect]
     Active Substance: CARBAMAZEPINE
  6. CLOBAZAM [Suspect]
     Active Substance: CLOBAZAM
  7. VALPROIC ACID [Suspect]
     Active Substance: VALPROIC ACID

REACTIONS (1)
  - Drug ineffective [Unknown]
